APPROVED DRUG PRODUCT: ROPIVACAINE HYDROCHLORIDE
Active Ingredient: ROPIVACAINE HYDROCHLORIDE
Strength: 150MG/30ML (5MG/ML)
Dosage Form/Route: SOLUTION;INJECTION
Application: A090194 | Product #002
Applicant: HOSPIRA INC
Approved: Sep 23, 2014 | RLD: No | RS: No | Type: DISCN